FAERS Safety Report 8368868-4 (Version None)
Quarter: 2012Q2

REPORT INFORMATION
  Report Type: 
  Country: None (occurrence: None)
  Receive Date: 20120516
  Receipt Date: 20120503
  Transmission Date: 20120825
  Serious: Yes (Hospitalization)
  Sender: FDA-Public Use
  Company Number: UTC-016866

PATIENT
  Age: 53 Year
  Sex: Female

DRUGS (5)
  1. ADCIRCA [Concomitant]
  2. COUMADIN [Concomitant]
  3. REMODULIN [Suspect]
     Indication: COR PULMONALE CHRONIC
     Dosage: .006 TO .007 UG/KG (1 IN 1 MIN), INTRAVENOUS
     Route: 042
     Dates: start: 20120216
  4. LETAIRIS [Concomitant]
  5. DIURETICS (DIURETICS) [Concomitant]

REACTIONS (2)
  - DYSPNOEA [None]
  - HEART RATE INCREASED [None]
